FAERS Safety Report 19424106 (Version 1)
Quarter: 2021Q2

REPORT INFORMATION
  Report Type: Spontaneous
  Country: JP (occurrence: JP)
  Receive Date: 20210616
  Receipt Date: 20210616
  Transmission Date: 20210717
  Serious: Yes (Hospitalization, Other)
  Sender: FDA-Public Use
  Company Number: JP-PFIZER INC-2021656000

PATIENT
  Age: 83 Year
  Sex: Female

DRUGS (4)
  1. TRASTUZUMAB. [Suspect]
     Active Substance: TRASTUZUMAB
     Indication: CHEMOTHERAPY
  2. ANASTROZOLE. [Suspect]
     Active Substance: ANASTROZOLE
     Indication: INFLAMMATORY CARCINOMA OF THE BREAST
     Dosage: 1 MG, 1X/DAY (AFTER COURSE 5 OF CHEMOTHERAPY.)
  3. TRASTUZUMAB. [Suspect]
     Active Substance: TRASTUZUMAB
     Indication: INFLAMMATORY CARCINOMA OF THE BREAST
     Dosage: 6 MG/KG (TRI?WEEKLY,  AFTER COURSE 5 OF CHEMOTHERAPY)
  4. ANASTROZOLE. [Suspect]
     Active Substance: ANASTROZOLE
     Indication: CHEMOTHERAPY

REACTIONS (1)
  - Interstitial lung disease [Recovering/Resolving]
